FAERS Safety Report 8479803-2 (Version None)
Quarter: 2012Q2

REPORT INFORMATION
  Report Type: 
  Country: None (occurrence: None)
  Receive Date: 20120629
  Receipt Date: 20120620
  Transmission Date: 20120825
  Serious: Yes (Other)
  Sender: FDA-Public Use
  Company Number: US-ABBOTT-12P-163-0947996-00

PATIENT
  Sex: Female
  Weight: 63.56 kg

DRUGS (4)
  1. ANTIBIOTICS [Concomitant]
     Indication: PROPHYLAXIS
     Dosage: PRE-SURGERY
     Dates: start: 20120301, end: 20120301
  2. HUMIRA [Suspect]
     Indication: CROHN'S DISEASE
     Route: 058
     Dates: start: 20070101, end: 20120301
  3. PENTASA [Concomitant]
     Indication: CROHN'S DISEASE
  4. UNKNOWN MEDICATION [Concomitant]
     Indication: BLOOD PRESSURE

REACTIONS (8)
  - INTESTINAL OBSTRUCTION [None]
  - PROCEDURAL SITE REACTION [None]
  - CROHN'S DISEASE [None]
  - FATIGUE [None]
  - SKIN EXFOLIATION [None]
  - HERNIA [None]
  - INFECTION [None]
  - ERYTHEMA [None]
